FAERS Safety Report 6194901-4 (Version None)
Quarter: 2009Q2

REPORT INFORMATION
  Report Type: 
  Country: None (occurrence: None)
  Receive Date: 20090519
  Receipt Date: 20090513
  Transmission Date: 20091009
  Serious: Yes (Hospitalization)
  Sender: FDA-Public Use
  Company Number: CH-ASTRAZENECA-2009PK01301

PATIENT
  Age: 96 Year
  Sex: Female

DRUGS (4)
  1. SEROQUEL [Suspect]
     Dosage: 40 MG EVERY SECOND DAY
     Route: 048
  2. MARCUMAR [Suspect]
     Route: 048
     Dates: start: 20080401, end: 20080714
  3. CALCIMAGON-D3 [Concomitant]
     Route: 048
  4. ARICEPT [Concomitant]
     Route: 048

REACTIONS (5)
  - HAEMATEMESIS [None]
  - HAEMATOMA [None]
  - HAEMORRHAGIC ANAEMIA [None]
  - INTERNATIONAL NORMALISED RATIO INCREASED [None]
  - SYNCOPE [None]
